FAERS Safety Report 8261588-6 (Version None)
Quarter: 2012Q2

REPORT INFORMATION
  Report Type: 
  Country: None (occurrence: None)
  Receive Date: 20120405
  Receipt Date: 20120326
  Transmission Date: 20120825
  Serious: Yes (Hospitalization, Other)
  Sender: FDA-Public Use
  Company Number: US-BAYER-200936438NA

PATIENT
  Age: 23 Year
  Sex: Female
  Weight: 57 kg

DRUGS (7)
  1. YASMIN [Suspect]
     Dosage: 1 DF (DAILY DOSE), QD, ORAL
     Route: 048
     Dates: start: 20020101, end: 20071107
  2. ORTHO TRI-CYCLEN LO [Concomitant]
     Dosage: UNK
     Dates: start: 20040601, end: 20040801
  3. ORTHO TRI-CYCLEN LO [Concomitant]
     Dosage: UNK
     Dates: start: 20041101, end: 20050301
  4. ANTIBIOTICS [Concomitant]
  5. ASCORBIC ACID [Concomitant]
     Dosage: UNK
  6. ACCUTANE [Concomitant]
  7. IBUPROFEN [Concomitant]

REACTIONS (15)
  - PULMONARY EMBOLISM [None]
  - FLANK PAIN [None]
  - CHEST DISCOMFORT [None]
  - PAIN IN EXTREMITY [None]
  - DYSPNOEA [None]
  - SNEEZING [None]
  - ERYTHEMA [None]
  - OEDEMA PERIPHERAL [None]
  - COUGH [None]
  - PYELONEPHRITIS [None]
  - CHEST PAIN [None]
  - MUSCULOSKELETAL DISCOMFORT [None]
  - DEEP VEIN THROMBOSIS [None]
  - ABDOMINAL PAIN LOWER [None]
  - TENDERNESS [None]
